FAERS Safety Report 13099269 (Version 6)
Quarter: 2017Q4

REPORT INFORMATION
  Report Type: Spontaneous
  Country: US (occurrence: US)
  Receive Date: 20170109
  Receipt Date: 20171218
  Transmission Date: 20180320
  Serious: No
  Sender: FDA-Public Use
  Company Number: US-ACTELION-A-US2017-147907

PATIENT
  Age: 52 Year
  Sex: Male
  Weight: 94.33 kg

DRUGS (5)
  1. OPSUMIT [Concomitant]
     Active Substance: MACITENTAN
  2. VELETRI [Suspect]
     Active Substance: EPOPROSTENOL
     Indication: PULMONARY ARTERIAL HYPERTENSION
     Dosage: 5.12 NG/KG, PER MIN
     Route: 042
     Dates: start: 20161227
  3. COUMADIN [Concomitant]
     Active Substance: WARFARIN SODIUM
  4. ADEMPAS [Concomitant]
     Active Substance: RIOCIGUAT
  5. SILDENAFIL CITRATE. [Concomitant]
     Active Substance: SILDENAFIL CITRATE

REACTIONS (15)
  - Thirst [Unknown]
  - Catheter site erythema [Unknown]
  - Oropharyngeal pain [Unknown]
  - Nausea [Unknown]
  - Liver disorder [Recovering/Resolving]
  - Pain in jaw [Recovering/Resolving]
  - Skin haemorrhage [Unknown]
  - Catheter site pruritus [Unknown]
  - Headache [Recovering/Resolving]
  - Dizziness [Unknown]
  - Nasopharyngitis [Unknown]
  - Flushing [Recovering/Resolving]
  - Fatigue [Recovering/Resolving]
  - Musculoskeletal pain [Recovering/Resolving]
  - Diarrhoea [Recovering/Resolving]

NARRATIVE: CASE EVENT DATE: 20170410
